FAERS Safety Report 12495268 (Version 1)
Quarter: 2016Q2

REPORT INFORMATION
  Report Type: Spontaneous
  Country: US (occurrence: US)
  Receive Date: 20160624
  Receipt Date: 20160624
  Transmission Date: 20160815
  Serious: No
  Sender: FDA-Public Use
  Company Number: US-PFIZER INC-2016303199

PATIENT
  Age: 64 Year
  Sex: Female
  Weight: 61 kg

DRUGS (1)
  1. IBRANCE [Suspect]
     Active Substance: PALBOCICLIB
     Indication: OVARIAN CANCER
     Dosage: 1 DF, DAILY BY MOUTH
     Route: 048
     Dates: start: 201604, end: 201606

REACTIONS (3)
  - Disease progression [Unknown]
  - Product use issue [Unknown]
  - Ovarian cancer [Unknown]

NARRATIVE: CASE EVENT DATE: 201606
